FAERS Safety Report 7501617-8 (Version None)
Quarter: 2011Q2

REPORT INFORMATION
  Report Type: 
  Country: None (occurrence: None)
  Receive Date: 20110524
  Receipt Date: 20110523
  Transmission Date: 20111010
  Serious: Yes (Other)
  Sender: FDA-Public Use
  Company Number: US-TEVA-282817USA

PATIENT
  Age: 85 Year
  Sex: Female

DRUGS (3)
  1. PIMOZIDE TABLETS [Suspect]
     Indication: SOMATIC DELUSION
     Dosage: 1 MILLIGRAM;
  2. QUETIAPINE [Suspect]
     Indication: SOMATIC DELUSION
     Dosage: 100 MILLIGRAM;
  3. RISPERIDONE [Suspect]
     Indication: SOMATIC DELUSION
     Dosage: .5 MILLIGRAM;

REACTIONS (2)
  - FATIGUE [None]
  - TARDIVE DYSKINESIA [None]
